FAERS Safety Report 12113979 (Version 3)
Quarter: 2017Q1

REPORT INFORMATION
  Report Type: Spontaneous
  Country: US (occurrence: US)
  Receive Date: 20160225
  Receipt Date: 20170126
  Transmission Date: 20170428
  Serious: No
  Sender: FDA-Public Use
  Company Number: US-PFIZER INC-2016096008

PATIENT
  Age: 69 Year
  Sex: Female
  Weight: 90.72 kg

DRUGS (4)
  1. SUTENT [Suspect]
     Active Substance: SUNITINIB MALATE
     Dosage: 12.5 MG, CYCLIC (THREE CAPSULES DAILY FOR TWO WEEKS ON ONE WEEK OFF)
  2. SUTENT [Suspect]
     Active Substance: SUNITINIB MALATE
     Indication: RENAL CELL CARCINOMA STAGE IV
     Dosage: 50 MG, 1X/DAY
     Route: 048
  3. SUTENT [Suspect]
     Active Substance: SUNITINIB MALATE
     Dosage: THREE OF 12.5 MG ONCE A DAY
     Route: 048
  4. SUTENT [Suspect]
     Active Substance: SUNITINIB MALATE
     Dosage: 150 MG, CYCLIC, (FOR FOUR WEEKS ON AND A WEEK OFF)

REACTIONS (2)
  - Diarrhoea [Not Recovered/Not Resolved]
  - Condition aggravated [Unknown]
